FAERS Safety Report 4475329-1 (Version None)
Quarter: 2004Q4

REPORT INFORMATION
  Report Type: 
  Country: None (occurrence: None)
  Receive Date: 20041015
  Receipt Date: 20041007
  Transmission Date: 20050328
  Serious: Yes (Other)
  Sender: FDA-Public Use
  Company Number: 200413143JP

PATIENT
  Age: 0 Year
  Sex: Male
  Weight: 2.36 kg

DRUGS (5)
  1. LASIX [Suspect]
     Indication: HAEMORRHAGE
     Route: 048
     Dates: start: 20040824, end: 20040911
  2. LASIX [Suspect]
     Indication: PROPHYLAXIS
     Route: 048
     Dates: start: 20040824, end: 20040911
  3. NEOPHYLLIN [Concomitant]
     Route: 042
     Dates: start: 20040822, end: 20040903
  4. NACL [Concomitant]
     Route: 048
     Dates: start: 20040828, end: 20040913
  5. SEPAMIT [Concomitant]
     Route: 048
     Dates: start: 20040906, end: 20040923

REACTIONS (7)
  - BLOOD ALDOSTERONE INCREASED [None]
  - BLOOD PRESSURE DECREASED [None]
  - BLOOD SODIUM DECREASED [None]
  - HYPERTENSION [None]
  - NEONATAL DISORDER [None]
  - PSEUDO-BARTTER SYNDROME [None]
  - RENIN INCREASED [None]
